FAERS Safety Report 25213710 (Version 1)
Quarter: 2025Q2

REPORT INFORMATION
  Report Type: Spontaneous
  Country: US (occurrence: None)
  Receive Date: 20250417
  Receipt Date: 20250417
  Transmission Date: 20250716
  Serious: Yes (Hospitalization)
  Sender: FDA-CTU
  Company Number: None

PATIENT
  Age: 74 Year
  Sex: Male
  Weight: 94 kg

DRUGS (1)
  1. TRAZODONE HCL [Suspect]
     Active Substance: TRAZODONE HYDROCHLORIDE
     Indication: Insomnia
     Route: 048

REACTIONS (5)
  - Bradycardia [None]
  - Therapy interrupted [None]
  - Neuropathy peripheral [None]
  - Post-traumatic stress disorder [None]
  - Chronic sinusitis [None]

NARRATIVE: CASE EVENT DATE: 20241124
